FAERS Safety Report 6290480-1 (Version None)
Quarter: 2009Q3

REPORT INFORMATION
  Report Type: 
  Country: None (occurrence: None)
  Receive Date: 20090730
  Receipt Date: 20090501
  Transmission Date: 20100115
  Serious: No
  Sender: FDA-Public Use
  Company Number: US-BRISTOL-MYERS SQUIBB COMPANY-14612238

PATIENT
  Age: 35 Year
  Sex: Female

DRUGS (2)
  1. COUMADIN [Suspect]
     Indication: ANTICOAGULANT THERAPY
     Dosage: REGIMEN 2: 5MG, QD, ORAL.
     Route: 048
  2. SOLIRIS [Suspect]
     Indication: PAROXYSMAL NOCTURNAL HAEMOGLOBINURIA
     Route: 042
     Dates: start: 20080328, end: 20080418

REACTIONS (4)
  - CONTUSION [None]
  - FATIGUE [None]
  - MUSCULOSKELETAL DISCOMFORT [None]
  - SENSATION OF HEAVINESS [None]
